FAERS Safety Report 8052763-4 (Version None)
Quarter: 2012Q1

REPORT INFORMATION
  Report Type: 
  Country: None (occurrence: None)
  Receive Date: 20120118
  Receipt Date: 20120109
  Transmission Date: 20120608
  Serious: Yes (Other)
  Sender: FDA-Public Use
  Company Number: PHHY2012MX003219

PATIENT
  Sex: Female

DRUGS (2)
  1. DIOVAN [Suspect]
     Indication: HYPERTENSION
     Dosage: ONE TABLET (80 MG) DAILY.
     Dates: start: 20091222
  2. ADEPSIQUE [Concomitant]
     Dosage: UNK

REACTIONS (5)
  - BACK PAIN [None]
  - CARDIOMEGALY [None]
  - RESPIRATORY TRACT INFECTION [None]
  - PYREXIA [None]
  - COUGH [None]
